FAERS Safety Report 10271146 (Version 1)
Quarter: 2014Q3

REPORT INFORMATION
  Report Type: Spontaneous
  Country: KR (occurrence: KR)
  Receive Date: 20140701
  Receipt Date: 20140701
  Transmission Date: 20150326
  Serious: Yes (Life-Threatening, Hospitalization, Other)
  Sender: FDA-Public Use
  Company Number: KR-ACTAVIS-2014-14010

PATIENT
  Age: 49 Year
  Sex: Male

DRUGS (5)
  1. LAMIVUDINE. [Concomitant]
     Active Substance: LAMIVUDINE
     Indication: ACQUIRED IMMUNODEFICIENCY SYNDROME
     Dosage: UNK
     Route: 065
  2. RITONAVIR [Concomitant]
     Active Substance: RITONAVIR
     Indication: ACQUIRED IMMUNODEFICIENCY SYNDROME
     Dosage: UNK
     Route: 065
  3. LOPINAVIR [Concomitant]
     Active Substance: LOPINAVIR
     Indication: ACQUIRED IMMUNODEFICIENCY SYNDROME
     Dosage: UNK
     Route: 065
  4. ABACAVIR [Concomitant]
     Active Substance: ABACAVIR
     Indication: ACQUIRED IMMUNODEFICIENCY SYNDROME
     Dosage: UNK
     Route: 065
  5. PHENYTOIN (AMALLC) [Suspect]
     Active Substance: PHENYTOIN
     Indication: SUICIDE ATTEMPT
     Dosage: 50 PILLS
     Route: 048

REACTIONS (7)
  - Aspartate aminotransferase increased [Recovering/Resolving]
  - Suicide attempt [Recovering/Resolving]
  - Intentional overdose [Recovering/Resolving]
  - Acute respiratory failure [Recovered/Resolved]
  - Coma [Recovered/Resolved]
  - Alanine aminotransferase increased [Recovering/Resolving]
  - Lung infiltration [Recovered/Resolved]
